FAERS Safety Report 15272778 (Version 1)
Quarter: 2018Q3

REPORT INFORMATION
  Report Type: Spontaneous
  Country: FR (occurrence: FR)
  Receive Date: 20180813
  Receipt Date: 20180813
  Transmission Date: 20181010
  Serious: Yes (Hospitalization)
  Sender: FDA-Public Use
  Company Number: FR-ELI_LILLY_AND_COMPANY-FR201808001405

PATIENT
  Age: 44 Year
  Sex: Male
  Weight: 103 kg

DRUGS (1)
  1. CIALIS [Suspect]
     Active Substance: TADALAFIL
     Indication: PRODUCT USED FOR UNKNOWN INDICATION
     Dosage: UNK UNK, UNKNOWN
     Route: 048
     Dates: start: 2015

REACTIONS (2)
  - Artery dissection [Not Recovered/Not Resolved]
  - Renal infarct [Not Recovered/Not Resolved]

NARRATIVE: CASE EVENT DATE: 20180112
